FAERS Safety Report 18428911 (Version 1)
Quarter: 2020Q4

REPORT INFORMATION
  Report Type: Report from Study
  Country: KR (occurrence: KR)
  Receive Date: 20201027
  Receipt Date: 20201027
  Transmission Date: 20210114
  Serious: Yes (Other)
  Sender: FDA-Public Use
  Company Number: KR-SUN PHARMACEUTICAL INDUSTRIES LTD-2020R1-265047

PATIENT
  Sex: Male

DRUGS (2)
  1. TADALAFIL. [Suspect]
     Active Substance: TADALAFIL
     Indication: ERECTILE DYSFUNCTION
  2. TADALAFIL. [Suspect]
     Active Substance: TADALAFIL
     Indication: DEPRESSION
     Dosage: 5 MILLIGRAM, DAILY
     Route: 065

REACTIONS (1)
  - Urinary retention [Unknown]
